FAERS Safety Report 4682790-6 (Version None)
Quarter: 2005Q2

REPORT INFORMATION
  Report Type: 
  Country: None (occurrence: None)
  Receive Date: 20050531
  Receipt Date: 20050113
  Transmission Date: 20051028
  Serious: Yes (Other)
  Sender: FDA-Public Use
  Company Number: 200510344US

PATIENT
  Age: 86 Year
  Sex: Male
  Weight: 100 kg

DRUGS (4)
  1. LOVENOX [Suspect]
     Indication: PROPHYLAXIS
     Dosage: 40 MG QD INJ
  2. WARFARIN SODIUM [Suspect]
     Indication: PROPHYLAXIS
  3. CEFTRIAXONE SODIUM (ROCEPHIN) [Concomitant]
  4. ZITHROMAX [Concomitant]

REACTIONS (1)
  - MUSCLE HAEMORRHAGE [None]
